FAERS Safety Report 20823365 (Version 3)
Quarter: 2022Q3

REPORT INFORMATION
  Report Type: Other
  Country: AU (occurrence: AU)
  Receive Date: 20220513
  Receipt Date: 20220912
  Transmission Date: 20221027
  Serious: Yes (Other)
  Sender: FDA-Public Use
  Company Number: AU-TOLMAR, INC.-21AU031872

PATIENT
  Sex: Male

DRUGS (1)
  1. ELIGARD [Suspect]
     Active Substance: LEUPROLIDE ACETATE
     Indication: Prostate cancer
     Dosage: 22.5 MILLIGRAM, Q 3 MONTH
     Dates: start: 20200912

REACTIONS (7)
  - Weight decreased [Unknown]
  - Pallor [Unknown]
  - Vomiting [Unknown]
  - Yellow skin [Unknown]
  - Hypoacusis [Unknown]
  - Malaise [Unknown]
  - Hot flush [Unknown]
